FAERS Safety Report 20589032 (Version 1)
Quarter: 2022Q1

REPORT INFORMATION
  Report Type: Spontaneous
  Country: US (occurrence: US)
  Receive Date: 20220314
  Receipt Date: 20220314
  Transmission Date: 20220423
  Serious: No
  Sender: FDA-Public Use
  Company Number: US-QILU PHARMACEUTICAL CO.LTD.-QLU-000149-2021

PATIENT
  Sex: Female

DRUGS (2)
  1. OLANZAPINE [Suspect]
     Active Substance: OLANZAPINE
     Indication: Product used for unknown indication
     Dosage: UNK
     Route: 065
     Dates: start: 2000
  2. OLANZAPINE [Suspect]
     Active Substance: OLANZAPINE
     Dosage: 2 DOSAGE FORM, QD
     Route: 065
     Dates: start: 20210620

REACTIONS (7)
  - Withdrawal syndrome [Unknown]
  - Headache [Unknown]
  - Neck pain [Unknown]
  - Product physical issue [Unknown]
  - Wrong product procured [Unknown]
  - Product packaging quantity issue [Unknown]
  - Therapeutic product effect incomplete [Unknown]
